FAERS Safety Report 4835476-9 (Version None)
Quarter: 2005Q4

REPORT INFORMATION
  Report Type: 
  Country: None (occurrence: None)
  Receive Date: 20051122
  Receipt Date: 20051122
  Transmission Date: 20060501
  Serious: Yes (Hospitalization)
  Sender: FDA-Public Use
  Company Number: None

PATIENT
  Sex: Male
  Weight: 99.7913 kg

DRUGS (3)
  1. EFFEXOR [Suspect]
     Indication: DEPRESSION
     Dosage: EFFEXOR  300MG  QD  PO
     Route: 048
     Dates: start: 20000101, end: 20050101
  2. ZOLOFT [Suspect]
     Dosage: ZOLOFT 150MG   QD  PO
     Route: 048
  3. COZAAR [Concomitant]

REACTIONS (11)
  - ABNORMAL BEHAVIOUR [None]
  - ALCOHOLISM [None]
  - DECREASED ACTIVITY [None]
  - DRUG WITHDRAWAL SYNDROME [None]
  - FAMILY STRESS [None]
  - FEELING ABNORMAL [None]
  - FEELING OF DESPAIR [None]
  - LEGAL PROBLEM [None]
  - MARITAL PROBLEM [None]
  - MEMORY IMPAIRMENT [None]
  - SUICIDAL IDEATION [None]
